FAERS Safety Report 6688632-1 (Version None)
Quarter: 2010Q2

REPORT INFORMATION
  Report Type: 
  Country: None (occurrence: None)
  Receive Date: 20100420
  Receipt Date: 20100415
  Transmission Date: 20101027
  Serious: Yes (Other)
  Sender: FDA-Public Use
  Company Number: BR-SANOFI-AVENTIS-2010SA022214

PATIENT
  Sex: Female
  Weight: 70 kg

DRUGS (8)
  1. APIDRA [Suspect]
     Indication: TYPE 2 DIABETES MELLITUS
     Dosage: ACCORDING TO CHO COUNT.
     Route: 058
     Dates: start: 20080101, end: 20100411
  2. APIDRA [Suspect]
     Route: 058
     Dates: start: 20100414, end: 20100414
  3. AUTOPEN 24 [Suspect]
     Dates: start: 20080101
  4. LANTUS [Suspect]
     Indication: TYPE 2 DIABETES MELLITUS
     Route: 058
     Dates: start: 20070101
  5. AUTOPEN 24 [Suspect]
     Dates: start: 20070101
  6. NOVORAPID [Suspect]
     Indication: TYPE 2 DIABETES MELLITUS
     Dosage: ACCORDING TO CHO COUNT.
     Route: 058
     Dates: start: 20100413
  7. ATENSINA [Concomitant]
     Route: 048
     Dates: start: 20070101
  8. AMLODIPINE [Concomitant]
     Route: 048
     Dates: start: 20070101

REACTIONS (4)
  - DRUG INEFFECTIVE [None]
  - EYE HAEMORRHAGE [None]
  - HYPERGLYCAEMIA [None]
  - WRONG DRUG ADMINISTERED [None]
